FAERS Safety Report 7595603-X (Version None)
Quarter: 2011Q3

REPORT INFORMATION
  Report Type: 
  Country: None (occurrence: None)
  Receive Date: 20110707
  Receipt Date: 20110629
  Transmission Date: 20111222
  Serious: Yes (Life-Threatening, Hospitalization)
  Sender: FDA-Public Use
  Company Number: JP-GLAXOSMITHKLINE-B0721388A

PATIENT
  Age: 7 Year
  Sex: Female

DRUGS (3)
  1. VALPROATE SODIUM [Suspect]
     Indication: EPILEPSY
     Dosage: 700MG PER DAY
     Route: 048
     Dates: start: 20090821, end: 20100803
  2. LAMICTAL [Suspect]
     Indication: EPILEPSY
     Route: 048
     Dates: start: 20100205
  3. CARBAMAZEPINE [Concomitant]
     Indication: EPILEPSY
     Route: 048

REACTIONS (12)
  - HAND-FOOT-AND-MOUTH DISEASE [None]
  - THYROIDITIS [None]
  - PYREXIA [None]
  - RASH [None]
  - DRUG RASH WITH EOSINOPHILIA AND SYSTEMIC SYMPTOMS [None]
  - MYOCARDITIS [None]
  - PALLOR [None]
  - HYPOTHYROIDISM [None]
  - CARDIOMEGALY [None]
  - HEPATIC FUNCTION ABNORMAL [None]
  - VOMITING [None]
  - VENTRICULAR FIBRILLATION [None]
